FAERS Safety Report 5204001-5 (Version None)
Quarter: 2007Q1

REPORT INFORMATION
  Report Type: 
  Country: None (occurrence: None)
  Receive Date: 20061027
  Receipt Date: 20060306
  Transmission Date: 20070707
  Serious: Yes (Other)
  Sender: FDA-Public Use
  Company Number: HQWYE293810MAR06

PATIENT
  Age: 59 Year
  Sex: Female

DRUGS (3)
  1. PREMARIN [Suspect]
  2. ESTRADIOL [Suspect]
  3. ESTRATEST [Suspect]

REACTIONS (1)
  - BREAST CANCER [None]
